FAERS Safety Report 10530056 (Version 1)
Quarter: 2014Q4

REPORT INFORMATION
  Report Type: Other
  Country: GB (occurrence: GB)
  Receive Date: 20141021
  Receipt Date: 20141021
  Transmission Date: 20150528
  Serious: Yes (Hospitalization, Other)
  Sender: FDA-Public Use
  Company Number: GB-TARO PHARMACEUTICALS U.S.A., INC-2014SUN02369

PATIENT
  Age: 58 Year
  Sex: Female

DRUGS (7)
  1. WARFARIN [Suspect]
     Active Substance: WARFARIN
     Indication: KNEE OPERATION
     Dosage: AS PER INTERNATIONAL NORMALISED RATIO
     Route: 048
     Dates: start: 20140915, end: 20140922
  2. PARACETAMOL [Concomitant]
     Active Substance: ACETAMINOPHEN
     Indication: KNEE OPERATION
     Dosage: 1 G, QID
  3. OMEPRAZOLE. [Concomitant]
     Active Substance: OMEPRAZOLE
     Dosage: 20 MG, 1 DOSE
  4. SALBUTAMOL [Concomitant]
     Active Substance: ALBUTEROL
     Dosage: 20 MG, OD
  5. CEFUROXIME. [Concomitant]
     Active Substance: CEFUROXIME
     Dosage: 125 MG, BID
     Dates: start: 20140926
  6. QVAR [Concomitant]
     Active Substance: BECLOMETHASONE DIPROPIONATE
     Dosage: MORNING, 1 DOSE = 100 MICROGRAMS
     Route: 055
  7. EVOHALER [Concomitant]
     Dosage: 2 DF, AS NECESSARY
     Route: 055

REACTIONS (6)
  - Blood bilirubin increased [None]
  - Gamma-glutamyltransferase increased [None]
  - Alanine aminotransferase increased [None]
  - Headache [Recovering/Resolving]
  - Liver function test abnormal [Recovering/Resolving]
  - Aspartate aminotransferase increased [None]

NARRATIVE: CASE EVENT DATE: 20140916
